FAERS Safety Report 5291324-7 (Version None)
Quarter: 2007Q2

REPORT INFORMATION
  Report Type: 
  Country: None (occurrence: None)
  Receive Date: 20070403
  Receipt Date: 20070323
  Transmission Date: 20071010
  Serious: Yes (Hospitalization)
  Sender: FDA-Public Use
  Company Number: RENA-11746

PATIENT
  Age: 61 Year
  Sex: Male

DRUGS (12)
  1. PHOSBLOCK 250 MG TABLETS [Suspect]
     Indication: HYPERPHOSPHATAEMIA
     Dosage: 0.75 G DAILY PO
     Route: 048
     Dates: start: 20060208, end: 20060323
  2. HERBAL MEDICINE [Concomitant]
  3. ETHYL ICOSAPENTATE [Concomitant]
  4. RANITIDINE HYDROCHLORIDE [Concomitant]
  5. TEPRENONE [Concomitant]
  6. PRECIPITATED CALCIUM CARBONATE [Concomitant]
  7. AMLODIPINE BESYLATE [Concomitant]
  8. CANDESARTAN CILEXETIL [Concomitant]
  9. FEXOFENADINE HYDROCHLORIDE [Concomitant]
  10. CALCIUM POLYSTYRENE SULFONATE [Concomitant]
  11. EPOETIN ALPHA [Concomitant]
  12. RABEPRAZOLE SODIUM [Concomitant]

REACTIONS (6)
  - DIALYSIS [None]
  - DIVERTICULITIS [None]
  - DIVERTICULUM INTESTINAL HAEMORRHAGIC [None]
  - ENTERITIS [None]
  - GASTRITIS EROSIVE [None]
  - HAEMOGLOBIN DECREASED [None]
